FAERS Safety Report 15003119 (Version 1)
Quarter: 2018Q2

REPORT INFORMATION
  Report Type: Spontaneous
  Country: ES (occurrence: ES)
  Receive Date: 20180612
  Receipt Date: 20180612
  Transmission Date: 20180711
  Serious: Yes (Hospitalization)
  Sender: FDA-Public Use
  Company Number: ES-SUN PHARMACEUTICAL INDUSTRIES LTD-2018R1-161300

PATIENT
  Age: 22 Year
  Sex: Male

DRUGS (5)
  1. OLANZAPINE. [Suspect]
     Active Substance: OLANZAPINE
     Indication: BIPOLAR DISORDER
     Dosage: 15 G, DAILY
     Route: 048
     Dates: start: 201505, end: 20160724
  2. INVEGA [Suspect]
     Active Substance: PALIPERIDONE
     Indication: BIPOLAR DISORDER
     Dosage: 6 MG, DAILY
     Route: 048
     Dates: start: 20160204, end: 20160724
  3. BIPERIDENO HIDROCLORURO (500CH) [Concomitant]
     Active Substance: BIPERIDEN HYDROCHLORIDE
     Indication: BIPOLAR DISORDER
     Dosage: 2 MG, DAILY
     Route: 048
     Dates: start: 20160317
  4. PALIPERIDONA (8094A) [Concomitant]
     Indication: BIPOLAR DISORDER
     Dosage: 100 MG, DAILY
     Route: 030
     Dates: start: 201601, end: 20160724
  5. VALPROATO SODIO (3194SO) [Suspect]
     Active Substance: VALPROATE SODIUM
     Indication: BIPOLAR DISORDER
     Dosage: 1 G, DAILY
     Route: 048
     Dates: start: 20160204

REACTIONS (1)
  - Extrapyramidal disorder [Recovered/Resolved]

NARRATIVE: CASE EVENT DATE: 20160722
